FAERS Safety Report 10649172 (Version 3)
Quarter: 2015Q1

REPORT INFORMATION
  Report Type: Spontaneous
  Country: GB (occurrence: GB)
  Receive Date: 20141212
  Receipt Date: 20150209
  Transmission Date: 20150720
  Serious: Yes (Other)
  Sender: FDA-Public Use
  Company Number: GB-TEVA-527586ISR

PATIENT
  Age: 80 Year
  Sex: Male

DRUGS (9)
  1. HEXOPAL [Interacting]
     Active Substance: INOSITOL NIACINATE
     Dosage: 1500 MILLIGRAM DAILY;
     Route: 048
  2. ISOSORBIDE DINITRATE. [Concomitant]
     Active Substance: ISOSORBIDE DINITRATE
     Dosage: 80 MILLIGRAM DAILY;
  3. TAMSULOSIN [Concomitant]
     Active Substance: TAMSULOSIN
     Dosage: 400 MICROGRAM DAILY;
  4. HEXOPAL [Interacting]
     Active Substance: INOSITOL NIACINATE
     Indication: INTERMITTENT CLAUDICATION
     Dosage: 1500 MILLIGRAM DAILY;
     Route: 048
     Dates: start: 20140828
  5. OLMESARTAN [Concomitant]
     Active Substance: OLMESARTAN
     Dosage: 20 MILLIGRAM DAILY;
  6. ATORVASTATIN [Concomitant]
     Active Substance: ATORVASTATIN
     Dosage: 10 MILLIGRAM DAILY;
  7. BETAHISTINE [Concomitant]
     Active Substance: BETAHISTINE
     Dosage: 48 MILLIGRAM DAILY;
  8. DILTIAZEM [Concomitant]
     Active Substance: DILTIAZEM
     Dosage: 360 MILLIGRAM DAILY;
  9. WARFARIN [Suspect]
     Active Substance: WARFARIN

REACTIONS (2)
  - Drug interaction [Recovered/Resolved]
  - International normalised ratio decreased [Recovered/Resolved]

NARRATIVE: CASE EVENT DATE: 201411
